FAERS Safety Report 25161089 (Version 1)
Quarter: 2025Q2

REPORT INFORMATION
  Report Type: Spontaneous
  Country: PT (occurrence: PT)
  Receive Date: 20250404
  Receipt Date: 20250404
  Transmission Date: 20250717
  Serious: Yes (Other)
  Sender: JOHNSON AND JOHNSON
  Company Number: PT-JNJFOC-20250405043

PATIENT
  Age: 32 Year
  Sex: Female

DRUGS (19)
  1. SPRAVATO [Suspect]
     Active Substance: ESKETAMINE
     Indication: Major depression
     Route: 045
     Dates: start: 20240729, end: 20241007
  2. SPRAVATO [Suspect]
     Active Substance: ESKETAMINE
     Indication: Depression
  3. VENLAFAXINE [Concomitant]
     Active Substance: VENLAFAXINE HYDROCHLORIDE
     Dates: start: 20240716, end: 20241030
  4. VORTIOXETINE [Concomitant]
     Active Substance: VORTIOXETINE
     Dates: start: 20240716
  5. TRAZODONE [Concomitant]
     Active Substance: TRAZODONE HYDROCHLORIDE
     Dates: start: 20240716, end: 20241206
  6. AMISULPRIDE [Concomitant]
     Active Substance: AMISULPRIDE
     Dates: start: 20240716, end: 20240731
  7. PREGABALIN [Concomitant]
     Active Substance: PREGABALIN
     Dates: start: 20240716
  8. ALPRAZOLAM [Concomitant]
     Active Substance: ALPRAZOLAM
     Dates: start: 20240716
  9. CLONAZEPAM [Concomitant]
     Active Substance: CLONAZEPAM
     Dates: start: 20240716
  10. MIDAZOLAM [Concomitant]
     Active Substance: MIDAZOLAM
     Dates: start: 20240716, end: 20240831
  11. TRIAZOLAM [Concomitant]
     Active Substance: TRIAZOLAM
     Dates: start: 20240716, end: 20250112
  12. LORAZEPAM [Concomitant]
     Active Substance: LORAZEPAM
     Dates: start: 20240716
  13. SULBUTIAMINE [Concomitant]
     Active Substance: SULBUTIAMINE
     Dates: start: 20240827
  14. OXYCODONE/NALOXONE G.L. [Concomitant]
     Dates: start: 20241015
  15. TRAZODONE [Concomitant]
     Active Substance: TRAZODONE HYDROCHLORIDE
     Dates: start: 20250226
  16. ESCITALOPRAM [Concomitant]
     Active Substance: ESCITALOPRAM OXALATE
     Dates: start: 20241015
  17. BUPROPION [Concomitant]
     Active Substance: BUPROPION
     Dates: start: 20250121
  18. MELATONIN [Concomitant]
     Active Substance: MELATONIN
     Dates: start: 20250121
  19. VALMEL [Concomitant]
     Dosage: 1 DOSE

REACTIONS (1)
  - Lymphoma [Not Recovered/Not Resolved]

NARRATIVE: CASE EVENT DATE: 20250226
